FAERS Safety Report 18584144 (Version 2)
Quarter: 2022Q1

REPORT INFORMATION
  Report Type: Spontaneous
  Country: US (occurrence: US)
  Receive Date: 20201207
  Receipt Date: 20220203
  Transmission Date: 20220423
  Serious: Yes (Death, Hospitalization, Other)
  Sender: FDA-Public Use
  Company Number: US-GLAXOSMITHKLINE-US2020GSK240349

PATIENT
  Sex: Female

DRUGS (4)
  1. ZANTAC [Suspect]
     Active Substance: RANITIDINE HYDROCHLORIDE
     Indication: Gastric disorder
     Dosage: 4 TIMES PER WEEK
     Route: 065
     Dates: start: 1987, end: 2020
  2. ZANTAC [Suspect]
     Active Substance: RANITIDINE HYDROCHLORIDE
     Indication: Illness
  3. RANITIDINE HYDROCHLORIDE [Suspect]
     Active Substance: RANITIDINE HYDROCHLORIDE
     Indication: Product used for unknown indication
     Dosage: 4 TIMES PER WEEK
     Route: 065
     Dates: start: 1987, end: 2020
  4. ZANTAC [Suspect]
     Active Substance: RANITIDINE HYDROCHLORIDE
     Indication: Product used for unknown indication
     Dosage: UNK
     Route: 065

REACTIONS (9)
  - Pancreatic carcinoma [Fatal]
  - Abdominal pain [Unknown]
  - Adenocarcinoma pancreas [Unknown]
  - Ductal adenocarcinoma of pancreas [Unknown]
  - Pancreatic duct dilatation [Unknown]
  - Pancreatic atrophy [Unknown]
  - Pancreatic mass [Unknown]
  - Pancreatic cyst [Unknown]
  - Pancreatic neoplasm [Unknown]
